FAERS Safety Report 8387931-5 (Version None)
Quarter: 2012Q2

REPORT INFORMATION
  Report Type: 
  Country: None (occurrence: None)
  Receive Date: 20120525
  Receipt Date: 20120522
  Transmission Date: 20120825
  Serious: Yes (Disabling)
  Sender: FDA-Public Use
  Company Number: US-MERCK-1205USA01497

PATIENT
  Sex: Female

DRUGS (4)
  1. FOSAMAX [Suspect]
     Indication: OSTEOPOROSIS PROPHYLAXIS
     Route: 048
     Dates: start: 19960101, end: 20000101
  2. FOSAMAX [Suspect]
     Indication: OSTEOPENIA
     Route: 048
     Dates: start: 19960101, end: 20000101
  3. FOSAMAX [Suspect]
     Route: 048
     Dates: start: 20040101, end: 20110115
  4. FOSAMAX [Suspect]
     Route: 048
     Dates: start: 20040101, end: 20110115

REACTIONS (6)
  - FEMUR FRACTURE [None]
  - OSTEOPOROSIS [None]
  - FRACTURE [None]
  - STRESS FRACTURE [None]
  - LOW TURNOVER OSTEOPATHY [None]
  - OSTEONECROSIS OF JAW [None]
